FAERS Safety Report 17860026 (Version 1)
Quarter: 2020Q2

REPORT INFORMATION
  Report Type: Spontaneous
  Country: US (occurrence: US)
  Receive Date: 20200604
  Receipt Date: 20200604
  Transmission Date: 20200714
  Serious: No
  Sender: FDA-Public Use
  Company Number: None

PATIENT
  Age: 38 Year
  Sex: Female
  Weight: 51.75 kg

DRUGS (1)
  1. DOVE (ALUMINUM CHLOROHYDRATE) [Suspect]
     Active Substance: ALUMINUM CHLOROHYDRATE

REACTIONS (2)
  - Product formulation issue [None]
  - Vitiligo [None]
